FAERS Safety Report 7808891-9 (Version None)
Quarter: 2011Q4

REPORT INFORMATION
  Report Type: 
  Country: None (occurrence: None)
  Receive Date: 20111012
  Receipt Date: 20111010
  Transmission Date: 20120403
  Serious: Yes (Death)
  Sender: FDA-Public Use
  Company Number: PHEH2011US06411

PATIENT
  Sex: Male

DRUGS (7)
  1. TRAMADOL HCL [Concomitant]
     Dosage: UNK UKN, UNK
  2. TERAZOSIN HCL [Concomitant]
     Dosage: UNK UKN, UNK
  3. CRESTOR [Concomitant]
     Dosage: UNK UKN, UNK
  4. DIOVAN [Suspect]
     Dosage: 1 DF, DAILY (320/12.5 MG)
     Route: 048
  5. ALBUTEROL [Concomitant]
     Dosage: UNK UKN, UNK
  6. BUDESONIDE [Concomitant]
     Dosage: UNK UKN, UNK
  7. CELEBREX [Concomitant]
     Dosage: UNK UKN, UNK

REACTIONS (1)
  - DEATH [None]
